FAERS Safety Report 5213346-4 (Version None)
Quarter: 2007Q1

REPORT INFORMATION
  Report Type: 
  Country: None (occurrence: None)
  Receive Date: 20070119
  Receipt Date: 20060817
  Transmission Date: 20070707
  Serious: No
  Sender: FDA-Public Use
  Company Number: US-GLAXOSMITHKLINE-A0608361A

PATIENT
  Age: 56 Year
  Sex: Female
  Weight: 49.5 kg

DRUGS (1)
  1. ARIXTRA [Suspect]
     Indication: VENA CAVA THROMBOSIS
     Dosage: 7.5MG PER DAY
     Route: 058
     Dates: start: 20060424

REACTIONS (3)
  - BLOOD CREATININE INCREASED [None]
  - HAEMATOMA [None]
  - WEIGHT DECREASED [None]
